FAERS Safety Report 13492696 (Version 1)
Quarter: 2017Q2

REPORT INFORMATION
  Report Type: Spontaneous
  Country: US (occurrence: US)
  Receive Date: 20170427
  Receipt Date: 20170427
  Transmission Date: 20170830
  Serious: No
  Sender: FDA-Public Use
  Company Number: US-BIOGEN-2017BI00392353

PATIENT
  Sex: Female

DRUGS (1)
  1. AVONEX [Suspect]
     Active Substance: INTERFERON BETA-1A
     Indication: MULTIPLE SCLEROSIS
     Route: 065
     Dates: start: 20170313

REACTIONS (12)
  - Muscle spasms [Unknown]
  - Gait disturbance [Unknown]
  - Anger [Unknown]
  - Respiratory rate increased [Unknown]
  - Crying [Unknown]
  - Depression [Unknown]
  - Stress [Unknown]
  - Contraception [Unknown]
  - Hypoaesthesia [Unknown]
  - Loss of control of legs [Unknown]
  - Balance disorder [Unknown]
  - Thyroid neoplasm [Unknown]
